FAERS Safety Report 4872471-8 (Version None)
Quarter: 2005Q4

REPORT INFORMATION
  Report Type: 
  Country: None (occurrence: None)
  Receive Date: 20051201
  Receipt Date: 20050803
  Transmission Date: 20060501
  Serious: No
  Sender: FDA-Public Use
  Company Number: 2005PV000826

PATIENT
  Age: 44 Year
  Sex: Female

DRUGS (5)
  1. BYETTA [Suspect]
     Indication: DIABETES MELLITUS
     Dosage: 10 MCG; BID; SC; 5 MCG; BID; SC
     Route: 058
     Dates: start: 20050601
  2. AMARYL [Concomitant]
  3. METFORMIN HCL [Concomitant]
  4. ATACAND [Concomitant]
  5. LIPITOR [Concomitant]

REACTIONS (3)
  - INJECTION SITE BRUISING [None]
  - INJECTION SITE HAEMORRHAGE [None]
  - INJECTION SITE PAIN [None]
